FAERS Safety Report 21485418 (Version 1)
Quarter: 2022Q4

REPORT INFORMATION
  Report Type: Spontaneous
  Country: US (occurrence: None)
  Receive Date: 20221019
  Receipt Date: 20221019
  Transmission Date: 20230113
  Serious: Yes (Hospitalization)
  Sender: FDA-Public Use
  Company Number: None

PATIENT
  Age: 9 Week
  Sex: Female

DRUGS (2)
  1. EPOGEN [Suspect]
     Active Substance: ERYTHROPOIETIN
     Indication: Chronic kidney disease
     Dosage: OTHER STRENGTH : 2,000U/ML;?
     Route: 058
     Dates: start: 20220904
  2. EPOGEN [Suspect]
     Active Substance: ERYTHROPOIETIN
     Indication: Anaemia

REACTIONS (2)
  - Rotavirus infection [None]
  - Therapy cessation [None]

NARRATIVE: CASE EVENT DATE: 20220906
